FAERS Safety Report 9714126 (Version 2)
Quarter: 2013Q4

REPORT INFORMATION
  Report Type: Spontaneous
  Country: US (occurrence: None)
  Receive Date: 20131122
  Receipt Date: 20131129
  Transmission Date: 20140711
  Serious: Yes (Hospitalization)
  Sender: FDA-Public Use
  Company Number: 2013-1820

PATIENT
  Age: 65 Year
  Sex: Male
  Weight: 78.47 kg

DRUGS (2)
  1. CARFILZOMIB [Suspect]
     Indication: PLASMA CELL MYELOMA
     Dosage: DAYS 1 + 2, INTRAVENOUS
     Route: 042
     Dates: start: 20131023, end: 20131024
  2. DEXAMETHASONE (DEXAMETHASONE) (8 MILLIGRAM) (DEXAMETHASONE) [Concomitant]

REACTIONS (2)
  - Cellulitis [None]
  - Extravasation [None]
